FAERS Safety Report 22232635 (Version 11)
Quarter: 2024Q2

REPORT INFORMATION
  Report Type: Spontaneous
  Country: US (occurrence: US)
  Receive Date: 20230420
  Receipt Date: 20240410
  Transmission Date: 20240716
  Serious: No
  Sender: FDA-Public Use
  Company Number: US-BRISTOL-MYERS SQUIBB COMPANY-2023-055388

PATIENT
  Age: 80 Year
  Sex: Female
  Weight: 63.05 kg

DRUGS (1)
  1. POMALYST [Suspect]
     Active Substance: POMALIDOMIDE
     Indication: Amyloidosis
     Route: 048
     Dates: start: 20230401

REACTIONS (15)
  - Hordeolum [Unknown]
  - Chest discomfort [Unknown]
  - Dry mouth [Unknown]
  - Pruritus [Unknown]
  - Off label use [Unknown]
  - Rash [Recovered/Resolved]
  - Chest pain [Unknown]
  - Fatigue [Not Recovered/Not Resolved]
  - Urinary tract infection [Unknown]
  - Joint swelling [Unknown]
  - Erythema [Unknown]
  - Peripheral swelling [Recovering/Resolving]
  - Back pain [Recovering/Resolving]
  - Oedema [Unknown]
  - Orthopnoea [Recovering/Resolving]
